FAERS Safety Report 10302609 (Version 1)
Quarter: 2014Q3

REPORT INFORMATION
  Report Type: Spontaneous
  Country: US (occurrence: None)
  Receive Date: 20140711
  Receipt Date: 20140711
  Transmission Date: 20150326
  Serious: Yes (Hospitalization)
  Sender: FDA-Public Use
  Company Number: None

PATIENT
  Age: 71 Year
  Sex: Male
  Weight: 68 kg

DRUGS (1)
  1. FOSAPREPITANT [Suspect]
     Active Substance: FOSAPREPITANT
     Route: 042
     Dates: start: 20140624, end: 20140624

REACTIONS (5)
  - Chest pain [None]
  - Anaphylactoid reaction [None]
  - Back pain [None]
  - Dizziness [None]
  - Flushing [None]

NARRATIVE: CASE EVENT DATE: 20140624
